FAERS Safety Report 6009137-7 (Version None)
Quarter: 2008Q4

REPORT INFORMATION
  Report Type: 
  Country: None (occurrence: None)
  Receive Date: 20081216
  Receipt Date: 20081201
  Transmission Date: 20090506
  Serious: Yes (Other)
  Sender: FDA-Public Use
  Company Number: 2008S1000438

PATIENT
  Sex: Male
  Weight: 64.5 kg

DRUGS (8)
  1. CUBICIN [Suspect]
     Indication: DECUBITUS ULCER
     Dosage: 6 MG/KG; Q48H; IV
     Route: 042
  2. CUBICIN [Suspect]
     Indication: ENTEROCOCCAL INFECTION
     Dosage: 6 MG/KG; Q48H; IV
     Route: 042
  3. CUBICIN [Suspect]
     Indication: OSTEOMYELITIS
     Dosage: 6 MG/KG; Q48H; IV
     Route: 042
  4. PANTOPRAZOLE [Concomitant]
  5. AMIODARONE HCL [Concomitant]
  6. ALBUTEROL [Concomitant]
  7. IPRATROPIUM BROMIDE [Concomitant]
  8. LINEZOLID [Concomitant]

REACTIONS (3)
  - BLOOD DISORDER [None]
  - INFECTION [None]
  - NEUTROPENIA [None]
